FAERS Safety Report 19313562 (Version 2)
Quarter: 2021Q3

REPORT INFORMATION
  Report Type: Spontaneous
  Country: US (occurrence: US)
  Receive Date: 20210527
  Receipt Date: 20210914
  Transmission Date: 20211014
  Serious: No
  Sender: FDA-Public Use
  Company Number: US-ELI_LILLY_AND_COMPANY-US202105012059

PATIENT
  Age: 38 Year
  Sex: Male

DRUGS (1)
  1. TALTZ [Suspect]
     Active Substance: IXEKIZUMAB
     Indication: PSORIASIS
     Dosage: 80 MG, UNKNOWN
     Route: 065
     Dates: start: 202009

REACTIONS (4)
  - Dysuria [Not Recovered/Not Resolved]
  - Crying [Recovered/Resolved]
  - Mood swings [Recovered/Resolved]
  - Haematuria [Unknown]

NARRATIVE: CASE EVENT DATE: 202012
